FAERS Safety Report 7624747-9 (Version None)
Quarter: 2011Q3

REPORT INFORMATION
  Report Type: 
  Country: None (occurrence: None)
  Receive Date: 20110720
  Receipt Date: 20080826
  Transmission Date: 20111222
  Serious: Yes (Death, Other)
  Sender: FDA-Public Use
  Company Number: US-BAYER-200812436NA

PATIENT
  Age: 69 Year
  Sex: Female
  Weight: 54.422 kg

DRUGS (23)
  1. EPOETIN ALFA [Concomitant]
  2. CYCLOSPORINE [Concomitant]
  3. NEPHROCAPS [Concomitant]
  4. ACTIGALL [Concomitant]
  5. OMNISCAN [Suspect]
     Indication: ULTRASOUND SCAN
     Dosage: UNK
     Dates: start: 20060411
  6. COUMADIN [Concomitant]
  7. DILTIAZEM [Concomitant]
  8. CALCIUM ACETATE [Concomitant]
  9. PHENERGAN [Concomitant]
  10. DIGOXIN [Concomitant]
  11. FUROSEMIDE [Concomitant]
  12. NIFEDIPINE [Concomitant]
  13. MAGNEVIST [Suspect]
     Indication: ULTRASOUND SCAN
     Dosage: UNK
     Dates: start: 20060411
  14. PROCRIT [Concomitant]
  15. HYDROCHLOROTHIAZIDE [Concomitant]
  16. SEVELAMER [Concomitant]
  17. MAGNEVIST [Suspect]
     Indication: NUCLEAR MAGNETIC RESONANCE IMAGING
     Route: 042
     Dates: start: 20060111, end: 20060111
  18. URSODIOL [Concomitant]
  19. PHOSLO [Concomitant]
  20. HEPARIN [Concomitant]
  21. METOPROLOL TARTRATE [Concomitant]
  22. POTASSIUM CHLORIDE [Concomitant]
  23. CARVEDILOL [Concomitant]

REACTIONS (12)
  - FIBROSIS [None]
  - PAIN [None]
  - ANHEDONIA [None]
  - INJURY [None]
  - SCAR [None]
  - EMOTIONAL DISTRESS [None]
  - DEFORMITY [None]
  - ANXIETY [None]
  - NEPHROGENIC SYSTEMIC FIBROSIS [None]
  - JOINT CONTRACTURE [None]
  - GENERAL PHYSICAL HEALTH DETERIORATION [None]
  - EXTREMITY CONTRACTURE [None]
